FAERS Safety Report 4355431-5 (Version None)
Quarter: 2004Q2

REPORT INFORMATION
  Report Type: 
  Country: None (occurrence: None)
  Receive Date: 20040504
  Receipt Date: 20040422
  Transmission Date: 20050107
  Serious: Yes (Hospitalization)
  Sender: FDA-Public Use
  Company Number: CA-JNJFOC-20031006407

PATIENT
  Age: 74 Year
  Sex: Female

DRUGS (5)
  1. REMICADE [Suspect]
     Indication: RHEUMATOID ARTHRITIS
     Dosage: INTRAVENOUS; SEE IMAGE
     Route: 042
     Dates: start: 20000419
  2. REMICADE [Suspect]
     Indication: RHEUMATOID ARTHRITIS
     Dosage: INTRAVENOUS; SEE IMAGE
     Route: 042
     Dates: start: 20020924
  3. REMICADE [Suspect]
     Indication: RHEUMATOID ARTHRITIS
     Dosage: INTRAVENOUS; SEE IMAGE
     Route: 042
     Dates: start: 20030515
  4. METHOTREXATE [Suspect]
  5. PREDNISONE [Concomitant]

REACTIONS (34)
  - ADENOCARCINOMA [None]
  - ANAEMIA [None]
  - ANKLE FRACTURE [None]
  - ARTHROPATHY [None]
  - ATELECTASIS [None]
  - ATRIAL FIBRILLATION [None]
  - BRONCHIOLITIS [None]
  - CARDIOMEGALY [None]
  - CELLULITIS [None]
  - CHRONIC OBSTRUCTIVE AIRWAYS DISEASE [None]
  - FLUID OVERLOAD [None]
  - FLUID RETENTION [None]
  - GASTROENTERITIS [None]
  - HELICOBACTER INFECTION [None]
  - HEPATIC CYST [None]
  - HYPERTENSION [None]
  - LUNG NEOPLASM [None]
  - METASTASES TO LUNG [None]
  - MITRAL VALVE INCOMPETENCE [None]
  - OEDEMA PERIPHERAL [None]
  - OSTEOPOROSIS [None]
  - OVARIAN CYST [None]
  - PLEURAL EFFUSION [None]
  - POST PROCEDURAL COMPLICATION [None]
  - PULMONARY EMBOLISM [None]
  - PULMONARY FIBROSIS [None]
  - PULMONARY HYPERTENSION [None]
  - PULMONARY OEDEMA [None]
  - RENAL FAILURE ACUTE [None]
  - SODIUM RETENTION [None]
  - STRESS FRACTURE [None]
  - TIBIA FRACTURE [None]
  - VASCULAR CALCIFICATION [None]
  - WOUND [None]
